FAERS Safety Report 8061971-8 (Version None)
Quarter: 2012Q1

REPORT INFORMATION
  Report Type: 
  Country: None (occurrence: None)
  Receive Date: 20120117
  Receipt Date: 20120109
  Transmission Date: 20120608
  Serious: Yes (Other)
  Sender: FDA-Public Use
  Company Number: 2012MA000510

PATIENT
  Age: 68 Year
  Sex: Male

DRUGS (4)
  1. PACLITAXEL [Suspect]
     Indication: SQUAMOUS CELL CARCINOMA
     Dosage: 45 MG/M**2;X5;IV
     Route: 042
  2. ENTACAPONE [Concomitant]
  3. PRAMIPEXOLE DIHYCHLLORIDE [Concomitant]
  4. CARBIDOPA AND LEVODOPA [Concomitant]

REACTIONS (6)
  - TREMOR [None]
  - MENTAL STATUS CHANGES [None]
  - HALLUCINATION, VISUAL [None]
  - CONFUSIONAL STATE [None]
  - MUSCULOSKELETAL STIFFNESS [None]
  - PSYCHOTIC DISORDER [None]
